FAERS Safety Report 19152422 (Version 1)
Quarter: 2021Q2

REPORT INFORMATION
  Report Type: Spontaneous
  Country: US (occurrence: US)
  Receive Date: 20210419
  Receipt Date: 20210419
  Transmission Date: 20210717
  Serious: Yes (Other)
  Sender: FDA-Public Use
  Company Number: US-HIKMA PHARMACEUTICALS USA INC.-US-H14001-21-01886

PATIENT
  Age: 68 Year
  Sex: Female

DRUGS (1)
  1. MITOMYCIN. [Suspect]
     Active Substance: MITOMYCIN
     Indication: TRABECULECTOMY
     Dosage: UNKNOWN
     Route: 065

REACTIONS (2)
  - Anterior chamber angle neovascularisation [Unknown]
  - Hyphaema [Unknown]
